FAERS Safety Report 7814262-1 (Version None)
Quarter: 2011Q4

REPORT INFORMATION
  Report Type: 
  Country: None (occurrence: None)
  Receive Date: 20111014
  Receipt Date: 20111008
  Transmission Date: 20120403
  Serious: Yes (Hospitalization)
  Sender: FDA-Public Use
  Company Number: CA-B.I. PHARMACEUTICALS,INC./RIDGEFIELD-2011-CN-01523CN

PATIENT

DRUGS (1)
  1. PRADAXA [Suspect]

REACTIONS (2)
  - RENAL IMPAIRMENT [None]
  - ANGINA UNSTABLE [None]
